FAERS Safety Report 22759696 (Version 3)
Quarter: 2024Q1

REPORT INFORMATION
  Report Type: Other
  Country: DE (occurrence: None)
  Receive Date: 20230728
  Receipt Date: 20240118
  Transmission Date: 20240410
  Serious: No
  Sender: FDA-Public Use
  Company Number: DE-ROCHE-3349404

PATIENT
  Age: 34 Year
  Sex: Female

DRUGS (5)
  1. OCREVUS [Suspect]
     Active Substance: OCRELIZUMAB
     Indication: Relapsing-remitting multiple sclerosis
     Dosage: MOST RECENT INFUSION OF OCRELIZUMAB WAS RECEIVED ON 04/MAY/2023.?600MG, 196 DAYS
     Route: 042
     Dates: start: 20220428
  2. CORTISONE [Suspect]
     Active Substance: CORTISONE
     Indication: Product used for unknown indication
     Route: 065
  3. VITAMIN D3 [Concomitant]
     Active Substance: CHOLECALCIFEROL
  4. VITAMIN B12 [Concomitant]
     Active Substance: CYANOCOBALAMIN
  5. OMEGA 3 [Concomitant]
     Active Substance: CAPSAICIN

REACTIONS (8)
  - Fatigue [Recovered/Resolved]
  - Genital infection fungal [Recovered/Resolved]
  - Mental fatigue [Recovered/Resolved]
  - Fluid retention [Recovered/Resolved]
  - Middle insomnia [Recovered/Resolved]
  - Nocturia [Recovered/Resolved]
  - Abnormal dreams [Recovered/Resolved]
  - Pain in extremity [Not Recovered/Not Resolved]

NARRATIVE: CASE EVENT DATE: 20221101
